FAERS Safety Report 24036049 (Version 1)
Quarter: 2024Q3

REPORT INFORMATION
  Report Type: Spontaneous
  Country: US (occurrence: US)
  Receive Date: 20240701
  Receipt Date: 20240701
  Transmission Date: 20241017
  Serious: Yes (Other)
  Sender: DR REDDYS
  Company Number: US-DRL-USA-LIT/USA/24/0009291

PATIENT
  Age: 31 Year
  Sex: Female

DRUGS (16)
  1. MOXIFLOXACIN [Suspect]
     Active Substance: MOXIFLOXACIN
     Indication: Burkholderia cepacia complex infection
  2. MOXIFLOXACIN [Suspect]
     Active Substance: MOXIFLOXACIN
     Indication: Staphylococcal infection
  3. MOXIFLOXACIN [Suspect]
     Active Substance: MOXIFLOXACIN
     Indication: Haemophilus infection
  4. CEFIDEROCOL [Concomitant]
     Active Substance: CEFIDEROCOL
     Indication: Burkholderia cepacia complex infection
  5. CEFIDEROCOL [Concomitant]
     Active Substance: CEFIDEROCOL
     Indication: Staphylococcal infection
  6. CEFIDEROCOL [Concomitant]
     Active Substance: CEFIDEROCOL
     Indication: Haemophilus infection
  7. MEROPENEM [Concomitant]
     Active Substance: MEROPENEM
     Indication: Burkholderia cepacia complex infection
  8. MEROPENEM [Concomitant]
     Active Substance: MEROPENEM
     Indication: Staphylococcal infection
  9. MEROPENEM [Concomitant]
     Active Substance: MEROPENEM
     Indication: Haemophilus infection
  10. TRIKAFTA [Concomitant]
     Active Substance: ELEXACAFTOR\IVACAFTOR\TEZACAFTOR
     Indication: Cystic fibrosis
  11. CEFIDEROCOL [Concomitant]
     Active Substance: CEFIDEROCOL
     Indication: Burkholderia cepacia complex infection
  12. CEFIDEROCOL [Concomitant]
     Active Substance: CEFIDEROCOL
     Indication: Staphylococcal infection
  13. CEFIDEROCOL [Concomitant]
     Active Substance: CEFIDEROCOL
     Indication: Haemophilus infection
  14. ERTAPENEM [Concomitant]
     Active Substance: ERTAPENEM
     Indication: Burkholderia cepacia complex infection
  15. ERTAPENEM [Concomitant]
     Active Substance: ERTAPENEM
     Indication: Staphylococcal infection
  16. ERTAPENEM [Concomitant]
     Active Substance: ERTAPENEM
     Indication: Haemophilus infection

REACTIONS (1)
  - Drug ineffective for unapproved indication [Unknown]
